FAERS Safety Report 23172392 (Version 1)
Quarter: 2023Q4

REPORT INFORMATION
  Report Type: Spontaneous
  Country: CN (occurrence: None)
  Receive Date: 20231110
  Receipt Date: 20231110
  Transmission Date: 20240109
  Serious: Yes (Hospitalization, Other)
  Sender: FDA-Public Use
  Company Number: 2023A252486

PATIENT
  Age: 10955 Day
  Sex: Female

DRUGS (1)
  1. BUDESONIDE\FORMOTEROL FUMARATE [Suspect]
     Active Substance: BUDESONIDE\FORMOTEROL FUMARATE
     Indication: Asthma
     Dosage: 100 UG, TWO TIMES A DAY
     Dates: start: 20231029, end: 20231030

REACTIONS (4)
  - Drug intolerance [Recovering/Resolving]
  - Palpitations [Recovering/Resolving]
  - Tremor [Recovering/Resolving]
  - Heart rate increased [Recovering/Resolving]

NARRATIVE: CASE EVENT DATE: 20231031
